FAERS Safety Report 8174411-5 (Version None)
Quarter: 2012Q1

REPORT INFORMATION
  Report Type: 
  Country: None (occurrence: None)
  Receive Date: 20120229
  Receipt Date: 20120217
  Transmission Date: 20120608
  Serious: Yes (Hospitalization, Disabling, Other)
  Sender: FDA-Public Use
  Company Number: BR-ELI_LILLY_AND_COMPANY-BR201010007009

PATIENT
  Sex: Female
  Weight: 58 kg

DRUGS (3)
  1. FORTEO [Suspect]
     Indication: OSTEOPOROSIS
     Dosage: UNK, UNKNOWN
     Route: 058
     Dates: start: 20090301, end: 20100601
  2. ANTIBIOTICS [Concomitant]
     Dosage: UNK, UNKNOWN
     Route: 065
  3. CLONAZEPAM [Concomitant]

REACTIONS (14)
  - UPPER LIMB FRACTURE [None]
  - SKIN DISORDER [None]
  - WEIGHT DECREASED [None]
  - FALL [None]
  - ADVERSE EVENT [None]
  - SENSORY LOSS [None]
  - HYPOTONIA [None]
  - DEVICE RELATED INFECTION [None]
  - LIMB DISCOMFORT [None]
  - BALANCE DISORDER [None]
  - MUSCULAR WEAKNESS [None]
  - INCORRECT DRUG ADMINISTRATION DURATION [None]
  - PATIENT-DEVICE INCOMPATIBILITY [None]
  - MOBILITY DECREASED [None]
